FAERS Safety Report 4511041-8 (Version None)
Quarter: 2004Q4

REPORT INFORMATION
  Report Type: 
  Country: None (occurrence: None)
  Receive Date: 20041018
  Receipt Date: 20040923
  Transmission Date: 20050328
  Serious: No
  Sender: FDA-Public Use
  Company Number: 209246

PATIENT
  Age: 41 Year
  Sex: Male

DRUGS (11)
  1. XOLAIR [Suspect]
     Indication: ASTHMA
     Dosage: 225 MG, Q2W, SUBCUTANEOUS
     Route: 058
     Dates: start: 20040310
  2. THEOPHYLLINE [Concomitant]
  3. SYNTHROID [Concomitant]
  4. COMBIVENT (ALBUTEROL, ALBUTEROL SULFATE, IPRATROPIUM BROMIDE) [Concomitant]
  5. PREDNISONE [Concomitant]
  6. ZYRTEC [Concomitant]
  7. PULMICORT [Concomitant]
  8. SINGULAIR [Concomitant]
  9. DUONEB (ALBUTEROL, ALBUTEROL SULFATE, IPRATROPIUM BROMIDE) [Concomitant]
  10. ATARAX [Concomitant]
  11. RHINOCORT AQUA (BUDESONIDE) [Concomitant]

REACTIONS (1)
  - PARAESTHESIA [None]
